FAERS Safety Report 7968356-0 (Version None)
Quarter: 2011Q4

REPORT INFORMATION
  Report Type: 
  Country: None (occurrence: None)
  Receive Date: 20111209
  Receipt Date: 20111128
  Transmission Date: 20120403
  Serious: Yes (Hospitalization, Other)
  Sender: FDA-Public Use
  Company Number: US-BAYER-2011-030604

PATIENT
  Age: 30 Year
  Sex: Female
  Weight: 106.58 kg

DRUGS (4)
  1. DROSPIRENONE AND ETHINYL ESTRADIOL [Suspect]
     Indication: CONTRACEPTION
     Dosage: UNK
     Dates: start: 20031201, end: 20090901
  2. YASMIN [Suspect]
     Indication: CONTRACEPTION
     Dosage: UNK
     Dates: start: 20031201, end: 20090901
  3. YAZ [Suspect]
     Indication: CONTRACEPTION
     Dosage: UNK
     Dates: start: 20031201, end: 20090901
  4. RANITIDINE HCL [Concomitant]

REACTIONS (4)
  - GALLBLADDER DISORDER [None]
  - CHOLELITHIASIS [None]
  - INJURY [None]
  - PAIN [None]
